FAERS Safety Report 11969453 (Version 2)
Quarter: 2016Q1

REPORT INFORMATION
  Report Type: Spontaneous
  Country: US (occurrence: US)
  Receive Date: 20160128
  Receipt Date: 20160219
  Transmission Date: 20160526
  Serious: No
  Sender: FDA-Public Use
  Company Number: US-SHIRE-US201600831

PATIENT
  Age: 13 Year
  Sex: Female
  Weight: 57.1 kg

DRUGS (3)
  1. LIALDA [Suspect]
     Active Substance: MESALAMINE
     Indication: CROHN^S DISEASE
     Dosage: 2.4 G, 1X/DAY:QD
     Route: 048
     Dates: start: 20140422
  2. HUMIRA [Concomitant]
     Active Substance: ADALIMUMAB
     Indication: CROHN^S DISEASE
     Dosage: 40 MG, 1X/2WKS (EVERY 14 DAYS)
     Route: 058
     Dates: start: 20130531
  3. UCERIS [Concomitant]
     Active Substance: BUDESONIDE
     Indication: PRODUCT USED FOR UNKNOWN INDICATION
     Dosage: 9 MG, 1X/DAY:QD
     Route: 048
     Dates: start: 20150518

REACTIONS (6)
  - Diarrhoea [Recovered/Resolved]
  - Drug administered to patient of inappropriate age [Not Recovered/Not Resolved]
  - Therapeutic response unexpected [Not Recovered/Not Resolved]
  - Condition aggravated [Not Recovered/Not Resolved]
  - Lip swelling [Recovered/Resolved]
  - Product use issue [Not Recovered/Not Resolved]

NARRATIVE: CASE EVENT DATE: 2014
